FAERS Safety Report 9127972 (Version 1)
Quarter: 2013Q1

REPORT INFORMATION
  Report Type: Spontaneous
  Country: US (occurrence: US)
  Receive Date: 20130228
  Receipt Date: 20130228
  Transmission Date: 20140127
  Serious: Yes (Hospitalization, Other)
  Sender: FDA-Public Use
  Company Number: US-SANOFI-AVENTIS-2013SA018209

PATIENT
  Age: 57 Year
  Sex: Male

DRUGS (3)
  1. LANTUS SOLOSTAR [Suspect]
     Indication: TYPE 1 DIABETES MELLITUS
     Dosage: 10 UNITS IN AM AND 15 UNITS IN PM
     Route: 058
     Dates: start: 2007
  2. SOLOSTAR [Suspect]
     Indication: TYPE 1 DIABETES MELLITUS
     Dates: start: 2007
  3. HUMALOG [Concomitant]

REACTIONS (4)
  - Memory impairment [Unknown]
  - Speech disorder [Unknown]
  - Musculoskeletal disorder [Unknown]
  - Hypoglycaemic unconsciousness [Not Recovered/Not Resolved]
